FAERS Safety Report 9523717 (Version 1)
Quarter: 2013Q3

REPORT INFORMATION
  Report Type: Spontaneous
  Country: US (occurrence: US)
  Receive Date: 20130914
  Receipt Date: 20130914
  Transmission Date: 20140515
  Serious: Yes (Other)
  Sender: FDA-Public Use
  Company Number: US-JNJFOC-20130902451

PATIENT
  Age: 5 Month
  Sex: Male

DRUGS (3)
  1. INFANT^S TYLENOL [Suspect]
     Indication: GROWING PAINS
     Route: 048
  2. INFANT^S TYLENOL [Suspect]
     Indication: TEETHING
     Route: 048
  3. INFANT^S TYLENOL [Suspect]
     Indication: SLEEP DISORDER THERAPY
     Route: 048

REACTIONS (3)
  - Pneumonia [Unknown]
  - Intentional overdose [Unknown]
  - Off label use [Unknown]
